FAERS Safety Report 9588989 (Version 1)
Quarter: 2013Q4

REPORT INFORMATION
  Report Type: Spontaneous
  Country: US (occurrence: US)
  Receive Date: 20131003
  Receipt Date: 20131003
  Transmission Date: 20140711
  Serious: No
  Sender: FDA-Public Use
  Company Number: US-AMGEN-USASP2012067292

PATIENT
  Sex: Female
  Weight: 66.21 kg

DRUGS (6)
  1. ENBREL [Suspect]
     Indication: RHEUMATOID ARTHRITIS
     Dosage: 50 MG, QWK
     Route: 058
  2. LEVOTHYROXIN [Concomitant]
     Dosage: 88 MUG, UNK
  3. CELEXA                             /00582602/ [Concomitant]
     Dosage: 20 MG, UNK
  4. ALEVE [Concomitant]
     Dosage: 220 MG, UNK
  5. FLEXERIL                           /00428402/ [Concomitant]
     Dosage: 5 MG, UNK
  6. FELDENE [Concomitant]
     Dosage: 10 MG, UNK

REACTIONS (1)
  - Injection site pain [Recovered/Resolved]
